FAERS Safety Report 8988195 (Version 2)
Quarter: 2013Q1

REPORT INFORMATION
  Report Type: Spontaneous
  Country: FR (occurrence: FR)
  Receive Date: 20121227
  Receipt Date: 20130109
  Transmission Date: 20140127
  Serious: Yes (Hospitalization)
  Sender: FDA-Public Use
  Company Number: FR-PFIZER INC-2012328568

PATIENT
  Age: 10 Year
  Sex: Female

DRUGS (3)
  1. ORELOX [Suspect]
     Indication: BRONCHITIS
     Dosage: UNK
     Route: 048
     Dates: start: 201209, end: 201209
  2. AUGMENTIN [Suspect]
     Indication: URINARY TRACT INFECTION
     Dosage: UNK
     Route: 048
     Dates: start: 201209, end: 201209
  3. BACTRIM [Suspect]
     Indication: URINARY TRACT INFECTION
     Dosage: UNK
     Route: 048
     Dates: start: 201209, end: 201209

REACTIONS (3)
  - Liver injury [Recovering/Resolving]
  - Blood bilirubin increased [Unknown]
  - Gamma-glutamyltransferase normal [Recovered/Resolved]
